FAERS Safety Report 12193620 (Version 1)
Quarter: 2016Q1

REPORT INFORMATION
  Report Type: Spontaneous
  Country: FR (occurrence: FR)
  Receive Date: 20160320
  Receipt Date: 20160320
  Transmission Date: 20160526
  Serious: Yes (Other)
  Sender: FDA-Public Use
  Company Number: FR-ROCHE-1727262

PATIENT
  Age: 62 Year
  Sex: Male

DRUGS (6)
  1. VINCRISTINE [Suspect]
     Active Substance: VINCRISTINE
     Indication: B-CELL LYMPHOMA
     Dosage: DAY2
     Route: 065
     Dates: start: 20150523, end: 20150523
  2. DOXORUBICINE [Suspect]
     Active Substance: DOXORUBICIN
     Indication: B-CELL LYMPHOMA
     Dosage: DAY 2
     Route: 065
     Dates: start: 20150523, end: 20150523
  3. CORTANCYL [Suspect]
     Active Substance: PREDNISONE
     Indication: B-CELL LYMPHOMA
     Dosage: DAY 1
     Route: 048
     Dates: start: 20150522, end: 20150522
  4. ENDOXAN [Suspect]
     Active Substance: CYCLOPHOSPHAMIDE
     Indication: B-CELL LYMPHOMA
     Dosage: DAY 2
     Route: 042
     Dates: start: 20150523, end: 20150523
  5. MABTHERA [Suspect]
     Active Substance: RITUXIMAB
     Indication: B-CELL LYMPHOMA
     Dosage: DAY1 , CYCLE 1
     Route: 042
     Dates: start: 20150522, end: 20150522
  6. MABTHERA [Suspect]
     Active Substance: RITUXIMAB
     Indication: B-CELL LYMPHOMA
     Route: 058
     Dates: start: 20151005, end: 20151005

REACTIONS (2)
  - Ill-defined disorder [Recovered/Resolved]
  - Atrial flutter [Recovered/Resolved]
